FAERS Safety Report 8816629 (Version 1)
Quarter: 2012Q4

REPORT INFORMATION
  Report Type: Spontaneous
  Country: JP (occurrence: None)
  Receive Date: 20120928
  Receipt Date: 20120928
  Transmission Date: 20130627
  Serious: Yes (Other)
  Sender: FDA-Public Use
  Company Number: AE-SPE-2012-011

PATIENT
  Age: 20 Month

DRUGS (1)
  1. CEFDITOREN PIVOXIL [Suspect]
     Indication: OTITIS MEDIA
     Route: 048

REACTIONS (3)
  - Altered state of consciousness [None]
  - Blood glucose decreased [None]
  - Carnitine decreased [None]
